FAERS Safety Report 13043825 (Version 1)
Quarter: 2016Q4

REPORT INFORMATION
  Report Type: Spontaneous
  Country: US (occurrence: US)
  Receive Date: 20161220
  Receipt Date: 20161220
  Transmission Date: 20170207
  Serious: Yes (Other)
  Sender: FDA-Public Use
  Company Number: US-ROCHE-1004091

PATIENT
  Age: 56 Year
  Sex: Female
  Weight: 67.19 kg

DRUGS (1)
  1. ZELBORAF [Suspect]
     Active Substance: VEMURAFENIB
     Indication: MALIGNANT MELANOMA
     Route: 048
     Dates: start: 20111003

REACTIONS (5)
  - Rash [Recovering/Resolving]
  - Swelling [Unknown]
  - Headache [Unknown]
  - Diarrhoea [Unknown]
  - Sunburn [Unknown]

NARRATIVE: CASE EVENT DATE: 20111007
